FAERS Safety Report 25897068 (Version 2)
Quarter: 2025Q4

REPORT INFORMATION
  Report Type: Spontaneous
  Country: US (occurrence: US)
  Receive Date: 20251008
  Receipt Date: 20251128
  Transmission Date: 20260118
  Serious: No
  Sender: SANOFI AVENTIS
  Company Number: US-SA-2025SA299356

PATIENT
  Age: 74 Year
  Sex: Female
  Weight: 117.91 kg

DRUGS (1)
  1. DUPIXENT [Suspect]
     Active Substance: DUPILUMAB
     Indication: Dermatitis atopic
     Dosage: 300 MG, QOW
     Route: 058

REACTIONS (2)
  - Injection site haemorrhage [Unknown]
  - Injection site pain [Unknown]

NARRATIVE: CASE EVENT DATE: 20251120
